FAERS Safety Report 8606812 (Version 2)
Quarter: 2013Q3

REPORT INFORMATION
  Report Type: Spontaneous
  Country: US (occurrence: US)
  Receive Date: 20120611
  Receipt Date: 20130723
  Transmission Date: 20140515
  Serious: Yes (Disabling, Other)
  Sender: FDA-Public Use
  Company Number: US-ASTRAZENECA-2012SE35264

PATIENT
  Sex: Male

DRUGS (10)
  1. NEXIUM [Suspect]
     Dosage: TWICE A DAY
     Route: 048
     Dates: start: 2002
  2. ALKA SELTZERS [Concomitant]
  3. PEPTO-BISMOL [Concomitant]
  4. INTELENCE [Concomitant]
     Indication: HIV INFECTION
  5. TRUVADA [Concomitant]
     Indication: HIV INFECTION
  6. ISENTRESS [Concomitant]
     Indication: HIV INFECTION
  7. IBUPROFEN [Concomitant]
     Indication: PAIN
  8. IBUPROFEN [Concomitant]
     Indication: INFLAMMATION
  9. BC POWDER [Concomitant]
     Indication: ARTHRITIS
  10. HYDROCHLOROTHIAZIDE [Concomitant]
     Indication: HYPERTENSION

REACTIONS (8)
  - Hip deformity [Unknown]
  - HIV test positive [Unknown]
  - Osteoporosis [Unknown]
  - Multiple fractures [Unknown]
  - Carpal tunnel syndrome [Unknown]
  - Tendonitis [Unknown]
  - Arthritis [Unknown]
  - Arthropathy [Unknown]
